FAERS Safety Report 22333663 (Version 1)
Quarter: 2023Q2

REPORT INFORMATION
  Report Type: Spontaneous
  Country: NL (occurrence: None)
  Receive Date: 20230517
  Receipt Date: 20230517
  Transmission Date: 20230722
  Serious: Yes (Death)
  Sender: FDA-Public Use
  Company Number: 2023A112860

PATIENT
  Age: 63 Year
  Sex: Male
  Weight: 95 kg

DRUGS (5)
  1. QUETIAPINE [Suspect]
     Active Substance: QUETIAPINE
     Indication: Affective disorder
     Dosage: 1 X PER DAY 1 PIECE
     Dates: start: 20220307
  2. ALPRAZOLAM [Suspect]
     Active Substance: ALPRAZOLAM
     Indication: Anxiety disorder
     Dosage: 1 PIECE 3 TIMES A DAY
     Dates: start: 20220307
  3. CITALOPRAM [Suspect]
     Active Substance: CITALOPRAM HYDROBROMIDE
     Indication: Anxiety disorder
     Dosage: 1 X PER DAY 1 PIECE
     Dates: start: 20220214
  4. OLANZAPINE [Concomitant]
     Active Substance: OLANZAPINE
  5. OLANZAPINE [Concomitant]
     Active Substance: OLANZAPINE

REACTIONS (1)
  - Completed suicide [Fatal]

NARRATIVE: CASE EVENT DATE: 20220315
